FAERS Safety Report 8413286-3 (Version None)
Quarter: 2012Q2

REPORT INFORMATION
  Report Type: 
  Country: None (occurrence: None)
  Receive Date: 20120605
  Receipt Date: 20120524
  Transmission Date: 20120825
  Serious: No
  Sender: FDA-Public Use
  Company Number: US-ASTRAZENECA-2012SE33975

PATIENT
  Age: 55 Year
  Sex: Female

DRUGS (3)
  1. ATACAND [Concomitant]
  2. CRESTOR [Suspect]
     Route: 048
  3. NEXIUM [Concomitant]

REACTIONS (2)
  - MALAISE [None]
  - ADVERSE DRUG REACTION [None]
